FAERS Safety Report 5288367-6 (Version None)
Quarter: 2007Q2

REPORT INFORMATION
  Report Type: 
  Country: None (occurrence: None)
  Receive Date: 20070405
  Receipt Date: 20070327
  Transmission Date: 20071010
  Serious: Yes (Hospitalization)
  Sender: FDA-Public Use
  Company Number: US-ABBOTT-07P-163-0363351-00

PATIENT
  Sex: Male
  Weight: 15.89 kg

DRUGS (2)
  1. OMNICEF [Suspect]
     Indication: SINUSITIS
     Route: 048
     Dates: start: 20070208, end: 20070228
  2. OMNICEF [Suspect]
     Route: 048
     Dates: start: 20070326

REACTIONS (1)
  - BODY TEMPERATURE DECREASED [None]
